FAERS Safety Report 19820402 (Version 1)
Quarter: 2021Q3

REPORT INFORMATION
  Report Type: Spontaneous
  Country: US (occurrence: US)
  Receive Date: 20210913
  Receipt Date: 20210913
  Transmission Date: 20211014
  Serious: No
  Sender: FDA-Public Use
  Company Number: US-SA-2021SA297863

PATIENT
  Age: 8 Year
  Sex: Female

DRUGS (3)
  1. TRIAMCINOLONE [Concomitant]
     Active Substance: TRIAMCINOLONE
  2. LUPRIDE [Concomitant]
     Active Substance: LEUPROLIDE ACETATE
  3. DUPIXENT [Suspect]
     Active Substance: DUPILUMAB
     Indication: DERMATITIS ATOPIC
     Dosage: 300 MG, QOW
     Route: 058
     Dates: start: 20201128

REACTIONS (9)
  - Quality of life decreased [Unknown]
  - Product dose omission issue [Unknown]
  - Asthma [Unknown]
  - Discomfort [Unknown]
  - Hyperhidrosis [Unknown]
  - Pyrexia [Unknown]
  - Rash [Unknown]
  - Sleep disorder [Unknown]
  - Dermatitis atopic [Unknown]

NARRATIVE: CASE EVENT DATE: 202108
